FAERS Safety Report 6702314-9 (Version None)
Quarter: 2010Q2

REPORT INFORMATION
  Report Type: 
  Country: None (occurrence: None)
  Receive Date: 20100429
  Receipt Date: 20100420
  Transmission Date: 20101027
  Serious: Yes (Other)
  Sender: FDA-Public Use
  Company Number: BR-ABBOTT-09P-020-0608304-00

PATIENT
  Sex: Female
  Weight: 55 kg

DRUGS (12)
  1. HUMIRA [Suspect]
     Indication: RHEUMATOID ARTHRITIS
     Route: 058
     Dates: start: 20070101
  2. ARCOXIA [Suspect]
     Indication: PAIN
     Route: 048
     Dates: end: 20100101
  3. AMILORIDE HCL AND HYDROCHLOROTHIAZIDE [Concomitant]
     Indication: DIURETIC THERAPY
     Dosage: 2.5 MG/25MG
     Route: 048
  4. AMILORIDE HCL AND HYDROCHLOROTHIAZIDE [Concomitant]
     Indication: HYPERTENSION
  5. DEFLAZACORT [Concomitant]
     Indication: PAIN
     Route: 048
  6. DEFLAZACORT [Concomitant]
     Indication: INFLAMMATION
  7. FOLIC ACID [Concomitant]
     Indication: DRUG USE FOR UNKNOWN INDICATION
     Route: 048
  8. METHOTREXATE [Concomitant]
     Indication: RHEUMATOID ARTHRITIS
     Route: 048
  9. PANTOPRAZOLE [Concomitant]
     Indication: ABDOMINAL DISCOMFORT
     Route: 048
  10. PARACETAMOL [Concomitant]
     Indication: PAIN
  11. MELOXICAM [Concomitant]
     Indication: PAIN
     Route: 048
  12. AMLODIPINE W/VALSARTAN [Concomitant]
     Indication: HYPERTENSION
     Dosage: 5 MG/160 MG

REACTIONS (8)
  - ARTHRALGIA [None]
  - BLOOD UREA INCREASED [None]
  - BRACHIAL PLEXUS INJURY [None]
  - CERVICAL SPINE FLATTENING [None]
  - DRUG INEFFECTIVE [None]
  - HYPOAESTHESIA [None]
  - MONOPLEGIA [None]
  - RED BLOOD CELL SEDIMENTATION RATE INCREASED [None]
